FAERS Safety Report 12384998 (Version 1)
Quarter: 2016Q2

REPORT INFORMATION
  Report Type: Spontaneous
  Country: SV (occurrence: None)
  Receive Date: 20160518
  Receipt Date: 20160518
  Transmission Date: 20160815
  Serious: Yes (Disabling, Other)
  Sender: FDA-Public Use
  Company Number: None

PATIENT
  Age: 32 Year
  Sex: Female
  Weight: 68.49 kg

DRUGS (1)
  1. CIPROFLOXACIN, 500MG ECOMED EACH TABLET PHARMEDIC [Suspect]
     Active Substance: CIPROFLOXACIN
     Indication: URINARY TRACT INFECTION
     Route: 002
     Dates: start: 20160406, end: 20160411

REACTIONS (9)
  - Tendon disorder [None]
  - Pyrexia [None]
  - Tremor [None]
  - Arthropathy [None]
  - Tendon pain [None]
  - Paraesthesia [None]
  - Nervous system disorder [None]
  - Muscle disorder [None]
  - Myalgia [None]

NARRATIVE: CASE EVENT DATE: 20160407
